FAERS Safety Report 12271923 (Version 1)
Quarter: 2016Q2

REPORT INFORMATION
  Report Type: Report from Study
  Country: US (occurrence: US)
  Receive Date: 20160415
  Receipt Date: 20160415
  Transmission Date: 20160815
  Serious: No
  Sender: FDA-Public Use
  Company Number: ADR-2015-00911

PATIENT
  Age: 67 Year
  Sex: Female

DRUGS (14)
  1. DILAUDID [Suspect]
     Active Substance: HYDROMORPHONE HYDROCHLORIDE
     Dosage: 1.7488 MCG/DAY
     Dates: start: 20150422
  2. IBUPROFEN. [Suspect]
     Active Substance: IBUPROFEN
  3. BUPIVACAINE. [Suspect]
     Active Substance: BUPIVACAINE
     Dosage: 13.547 MG/DAY
  4. COMPOUNDED BACLOFEN [Suspect]
     Active Substance: BACLOFEN
     Dosage: 174.88 MCG/DAY
     Dates: start: 20150422
  5. CLONIDINE. [Suspect]
     Active Substance: CLONIDINE
     Dosage: 174.88 MCG/DAY
     Dates: start: 20150422
  6. COMPOUNDED BACLOFEN [Suspect]
     Active Substance: BACLOFEN
     Dosage: 225.79 MCG/DAY
  7. DILAUDID [Suspect]
     Active Substance: HYDROMORPHONE HYDROCHLORIDE
     Dosage: 2.2579 MG/DAY
  8. OXYCODONE [Suspect]
     Active Substance: OXYCODONE
  9. COMPOUNDED BACLOFEN [Suspect]
     Active Substance: BACLOFEN
     Dosage: 125.03 MCG/DAY
     Dates: start: 20150326, end: 20150422
  10. DILAUDID [Suspect]
     Active Substance: HYDROMORPHONE HYDROCHLORIDE
     Dosage: 2.5006 MG/DAY
     Dates: start: 20150326, end: 20150422
  11. BUPIVACAINE. [Suspect]
     Active Substance: BUPIVACAINE
     Dosage: 25.006 MG/DAY
     Dates: start: 20150326, end: 20150422
  12. CLONIDINE. [Suspect]
     Active Substance: CLONIDINE
     Dosage: 125.03 MCG/DAY
     Dates: start: 20150326, end: 20150422
  13. BUPIVACAINE. [Suspect]
     Active Substance: BUPIVACAINE
     Dosage: 10.493 MG/DAY
     Dates: start: 20150422
  14. CLONIDINE. [Suspect]
     Active Substance: CLONIDINE
     Dosage: 225.79 MCG/DAY

REACTIONS (2)
  - Dizziness [Recovered/Resolved]
  - Adverse drug reaction [Unknown]
